FAERS Safety Report 4897479-8 (Version None)
Quarter: 2006Q1

REPORT INFORMATION
  Report Type: 
  Country: None (occurrence: None)
  Receive Date: 20060201
  Receipt Date: 20060125
  Transmission Date: 20060701
  Serious: Yes (Hospitalization)
  Sender: FDA-Public Use
  Company Number: US-BRISTOL-MYERS SQUIBB COMPANY-13260187

PATIENT
  Age: 67 Year
  Sex: Female

DRUGS (7)
  1. CETUXIMAB [Suspect]
     Indication: NON-SMALL CELL LUNG CANCER
     Dosage: FIRST COURSE.
     Route: 042
     Dates: start: 20060118, end: 20060118
  2. CARBOPLATIN [Suspect]
     Indication: NON-SMALL CELL LUNG CANCER
     Dosage: FIRST COURSE.
     Route: 042
     Dates: start: 20060118, end: 20060118
  3. TAXOTERE [Suspect]
     Indication: NON-SMALL CELL LUNG CANCER
     Dosage: FIRST COURSE.
     Route: 042
     Dates: start: 20060118, end: 20060118
  4. DEXAMETHASONE TAB [Concomitant]
     Route: 042
     Dates: start: 20060118, end: 20060118
  5. GRANISETRON [Concomitant]
     Route: 042
     Dates: start: 20060118, end: 20060118
  6. DIPHENHYDRAMINE HCL [Concomitant]
     Route: 042
     Dates: start: 20060118, end: 20060118
  7. CIMETIDINE [Concomitant]
     Route: 042
     Dates: start: 20060118, end: 20060118

REACTIONS (1)
  - DEHYDRATION [None]
